FAERS Safety Report 26082922 (Version 1)
Quarter: 2025Q4

REPORT INFORMATION
  Report Type: Spontaneous
  Country: BR (occurrence: BR)
  Receive Date: 20251124
  Receipt Date: 20251124
  Transmission Date: 20260118
  Serious: Yes (Other)
  Sender: CHEPLAPHARM
  Company Number: BR-BIOPAS-2025-BR-000252

PATIENT
  Sex: Female
  Weight: 68 kg

DRUGS (6)
  1. CLONAZEPAM [Suspect]
     Active Substance: CLONAZEPAM
     Indication: Vertigo
     Dosage: 1 TABLET DAILY AT NIGHT?DAILY DOSE: 1 DOSAGE FORM
     Route: 048
     Dates: start: 1999
  2. CLONAZEPAM [Suspect]
     Active Substance: CLONAZEPAM
     Indication: Dizziness
     Dosage: 1 TABLET DAILY AT NIGHT?DAILY DOSE: 1 DOSAGE FORM
     Route: 048
     Dates: start: 1999
  3. CLONAZEPAM [Suspect]
     Active Substance: CLONAZEPAM
     Indication: Vertigo
     Dosage: DAILY DOSE: 1 MILLIGRAM
     Route: 048
  4. CLONAZEPAM [Suspect]
     Active Substance: CLONAZEPAM
     Indication: Dizziness
     Dosage: DAILY DOSE: 1 MILLIGRAM
     Route: 048
  5. NOVALGINA [Concomitant]
     Active Substance: ACETAMINOPHEN\CAFFEINE
     Indication: Spinal disorder
     Dosage: ADMINISTERS WHEN NECESSARY
  6. ACETAMINOPHEN\CAFFEINE\CARISOPRODOL\DICLOFENAC SODIUM [Concomitant]
     Active Substance: ACETAMINOPHEN\CAFFEINE\CARISOPRODOL\DICLOFENAC SODIUM
     Indication: Spinal disorder
     Dosage: ADMINISTERS WHEN NECESSARY

REACTIONS (10)
  - Drug dependence [Not Recovered/Not Resolved]
  - Carotid arteriosclerosis [Not Recovered/Not Resolved]
  - Insomnia [Not Recovered/Not Resolved]
  - Wrong technique in product usage process [Recovered/Resolved]
  - Blood cholesterol increased [Not Recovered/Not Resolved]
  - Thyroid disorder [Not Recovered/Not Resolved]
  - Glucose tolerance impaired [Not Recovered/Not Resolved]
  - Hypertension [Recovered/Resolved]
  - Pain [Not Recovered/Not Resolved]
  - Product use in unapproved indication [Not Recovered/Not Resolved]

NARRATIVE: CASE EVENT DATE: 19990101
